FAERS Safety Report 12156121 (Version 2)
Quarter: 2016Q2

REPORT INFORMATION
  Report Type: Spontaneous
  Country: GR (occurrence: GR)
  Receive Date: 20160307
  Receipt Date: 20160404
  Transmission Date: 20160815
  Serious: Yes (Hospitalization, Other)
  Sender: FDA-Public Use
  Company Number: GR-BAXALTA-2016BLT001303

PATIENT
  Age: 60 Year
  Sex: Male

DRUGS (1)
  1. HYQVIA [Suspect]
     Active Substance: HUMAN IMMUNOGLOBULIN G\HYALURONIDASE RECOMBINANT HUMAN
     Indication: IMMUNODEFICIENCY COMMON VARIABLE
     Dosage: 25 MG, UNK, 3RD DOSE
     Route: 058
     Dates: start: 20160217

REACTIONS (4)
  - Headache [Recovering/Resolving]
  - Pyrexia [Unknown]
  - Epilepsy [Recovering/Resolving]
  - Optic neuritis [Recovering/Resolving]
